FAERS Safety Report 9064694 (Version 1)
Quarter: 2013Q1

REPORT INFORMATION
  Report Type: Spontaneous
  Country: TR (occurrence: TR)
  Receive Date: 20130214
  Receipt Date: 20130214
  Transmission Date: 20140127
  Serious: Yes (Hospitalization)
  Sender: FDA-Public Use
  Company Number: TR-ACCORD-016330

PATIENT
  Age: 55 Year
  Sex: Male

DRUGS (3)
  1. DOCETAXEL [Suspect]
     Indication: NON-SMALL CELL LUNG CANCER
     Dosage: DAY 1
  2. 5-FLUOROURACIL [Suspect]
     Indication: NON-SMALL CELL LUNG CANCER
     Dosage: DAY 1-5
  3. CISPLATIN [Suspect]
     Indication: NON-SMALL CELL LUNG CANCER
     Dosage: DAY 1

REACTIONS (1)
  - Pericarditis [Recovered/Resolved]
